FAERS Safety Report 17742826 (Version 1)
Quarter: 2020Q2

REPORT INFORMATION
  Report Type: Other
  Country: DE (occurrence: DE)
  Receive Date: 20200504
  Receipt Date: 20200504
  Transmission Date: 20200714
  Serious: Yes (Life-Threatening, Other)
  Sender: FDA-Public Use
  Company Number: DE-GE HEALTHCARE LIFE SCIENCES-2020CSU001758

PATIENT

DRUGS (15)
  1. CLARISCAN [Suspect]
     Active Substance: GADOTERATE MEGLUMINE
     Indication: MAGNETIC RESONANCE IMAGING BRAIN
     Dosage: 12 ML, SINGLE
     Route: 042
     Dates: start: 20180924, end: 20180924
  2. MAGNEVISION [Suspect]
     Active Substance: GADOPENTETATE DIMEGLUMINE
     Indication: MAGNETIC RESONANCE IMAGING BRAIN
     Dosage: 15 ML
     Route: 042
     Dates: start: 20120408, end: 20120408
  3. MAGNEVIST [Suspect]
     Active Substance: GADOPENTETATE DIMEGLUMINE
     Indication: NEUROSARCOIDOSIS
     Dosage: 14 ML
     Route: 042
     Dates: start: 20100416, end: 20100416
  4. GADOVIST [Suspect]
     Active Substance: GADOBUTROL
     Indication: MAGNETIC RESONANCE IMAGING
  5. DOTAREM [Suspect]
     Active Substance: GADOTERATE MEGLUMINE
     Dosage: 12 ML
     Route: 042
     Dates: start: 20120402, end: 20120402
  6. MAGNEVISION [Suspect]
     Active Substance: GADOPENTETATE DIMEGLUMINE
     Indication: NEUROSARCOIDOSIS
  7. MAGNEVIST [Suspect]
     Active Substance: GADOPENTETATE DIMEGLUMINE
     Indication: MAGNETIC RESONANCE IMAGING BRAIN
     Dosage: 11 ML
     Route: 042
     Dates: start: 20101021, end: 20101021
  8. MAGNEVIST [Suspect]
     Active Substance: GADOPENTETATE DIMEGLUMINE
     Indication: SARCOIDOSIS
  9. GADOVIST [Suspect]
     Active Substance: GADOBUTROL
     Indication: MAGNETIC RESONANCE IMAGING BRAIN
     Dosage: 6 ML, EACH
     Route: 042
     Dates: start: 20110530, end: 20181111
  10. GADOVIST [Suspect]
     Active Substance: GADOBUTROL
     Indication: MAGNETIC RESONANCE IMAGING NECK
     Dosage: 6 ML
     Route: 042
     Dates: start: 20141203, end: 20141203
  11. GADOVIST [Suspect]
     Active Substance: GADOBUTROL
     Indication: NEUROSARCOIDOSIS
  12. DOTAREM [Suspect]
     Active Substance: GADOTERATE MEGLUMINE
     Indication: MAGNETIC RESONANCE IMAGING BRAIN
     Dosage: 12 ML
     Route: 042
     Dates: start: 20141113, end: 20141113
  13. DOTAREM [Suspect]
     Active Substance: GADOTERATE MEGLUMINE
     Dosage: 12 ML
     Route: 042
     Dates: start: 20141113, end: 20141113
  14. CLARISCAN [Suspect]
     Active Substance: GADOTERATE MEGLUMINE
     Indication: NEUROSARCOIDOSIS
  15. GADOVIST [Suspect]
     Active Substance: GADOBUTROL
     Indication: SARCOIDOSIS

REACTIONS (16)
  - Spinal pain [Not Recovered/Not Resolved]
  - Headache [Not Recovered/Not Resolved]
  - Fatigue [Not Recovered/Not Resolved]
  - Arrhythmia [Not Recovered/Not Resolved]
  - Adverse reaction [Not Recovered/Not Resolved]
  - Sudden onset of sleep [Not Recovered/Not Resolved]
  - Musculoskeletal stiffness [Not Recovered/Not Resolved]
  - Muscle twitching [Recovered/Resolved]
  - Extrasystoles [Not Recovered/Not Resolved]
  - Myalgia [Not Recovered/Not Resolved]
  - Disturbance in attention [Not Recovered/Not Resolved]
  - Vision blurred [Not Recovered/Not Resolved]
  - Memory impairment [Not Recovered/Not Resolved]
  - Palpitations [Not Recovered/Not Resolved]
  - Back pain [Not Recovered/Not Resolved]
  - Asthenia [Not Recovered/Not Resolved]
